FAERS Safety Report 8215348-2 (Version None)
Quarter: 2012Q1

REPORT INFORMATION
  Report Type: 
  Country: None (occurrence: None)
  Receive Date: 20120316
  Receipt Date: 20120313
  Transmission Date: 20120608
  Serious: Yes (Other)
  Sender: FDA-Public Use
  Company Number: AU-PFIZER INC-2011310849

PATIENT
  Sex: Male

DRUGS (7)
  1. ACETYLSALICYLIC ACID [Concomitant]
  2. PREDNISOLONE [Concomitant]
  3. LEFLUNOMIDE [Concomitant]
  4. METOPROLOL TARTRATE [Concomitant]
  5. ATACAND HCT [Concomitant]
  6. LIPITOR [Suspect]
     Indication: BLOOD CHOLESTEROL INCREASED
     Dosage: 40 MG, UNK
  7. CATAPRES [Concomitant]

REACTIONS (4)
  - DYSURIA [None]
  - RADIATION NECROSIS [None]
  - POLLAKIURIA [None]
  - DRUG INTERACTION [None]
